FAERS Safety Report 6771751-9 (Version None)
Quarter: 2010Q2

REPORT INFORMATION
  Report Type: 
  Country: None (occurrence: None)
  Receive Date: 20100616
  Receipt Date: 20090429
  Transmission Date: 20101027
  Serious: No
  Sender: FDA-Public Use
  Company Number: US-ASTRAZENECA-2009UW10738

PATIENT
  Age: 89 Year
  Sex: Male

DRUGS (1)
  1. ATACAND [Suspect]
     Indication: BLOOD PRESSURE
     Route: 048

REACTIONS (1)
  - BLOOD PRESSURE ABNORMAL [None]
